FAERS Safety Report 11002608 (Version 2)
Quarter: 2015Q2

REPORT INFORMATION
  Report Type: Spontaneous
  Country: US (occurrence: US)
  Receive Date: 20150408
  Receipt Date: 20150505
  Transmission Date: 20150821
  Serious: No
  Sender: FDA-Public Use
  Company Number: US-GLAXOSMITHKLINE-US2015046288

PATIENT
  Age: 72 Year
  Sex: Female

DRUGS (7)
  1. ASPIRIN (BABY) [Concomitant]
  2. PRAVASTATIN [Concomitant]
     Active Substance: PRAVASTATIN\PRAVASTATIN SODIUM
  3. ANORO ELLIPTA [Suspect]
     Active Substance: UMECLIDINIUM BROMIDE\VILANTEROL TRIFENATATE
     Dosage: UNK
  4. ANORO ELLIPTA [Suspect]
     Active Substance: UMECLIDINIUM BROMIDE\VILANTEROL TRIFENATATE
     Dosage: UNK
  5. ATENOLOL. [Concomitant]
     Active Substance: ATENOLOL
  6. LISINOPRIL. [Concomitant]
     Active Substance: LISINOPRIL
  7. ANORO ELLIPTA [Suspect]
     Active Substance: UMECLIDINIUM BROMIDE\VILANTEROL TRIFENATATE
     Indication: EMPHYSEMA
     Dosage: 1 PUFF(S), QD
     Route: 055
     Dates: start: 20150306

REACTIONS (4)
  - Sinusitis [Unknown]
  - Bronchitis [Unknown]
  - Cough [Recovering/Resolving]
  - Dysgeusia [Unknown]

NARRATIVE: CASE EVENT DATE: 20150306
